FAERS Safety Report 18325143 (Version 1)
Quarter: 2020Q3

REPORT INFORMATION
  Report Type: Spontaneous
  Country: DE (occurrence: DE)
  Receive Date: 20200929
  Receipt Date: 20200929
  Transmission Date: 20201103
  Serious: Yes (Hospitalization)
  Sender: FDA-Public Use
  Company Number: DE-MYLANLABS-2020M1081364

PATIENT
  Age: 92 Year
  Sex: Female

DRUGS (8)
  1. TORASEMIDE [Suspect]
     Active Substance: TORSEMIDE
     Indication: PRODUCT USED FOR UNKNOWN INDICATION
     Dosage: 10 MG, 1?1?0?0
  2. UNACID                             /00917901/ [Suspect]
     Active Substance: AMPICILLIN SODIUM\SULBACTAM SODIUM
     Indication: PRODUCT USED FOR UNKNOWN INDICATION
     Dosage: ABGESETZT
  3. ESCITALOPRAM [Concomitant]
     Active Substance: ESCITALOPRAM OXALATE
     Dosage: 10 MG, 1?0?0?0
  4. CIPROFLOXACIN. [Suspect]
     Active Substance: CIPROFLOXACIN
     Indication: PRODUCT USED FOR UNKNOWN INDICATION
     Dosage: ABGESETZT
  5. KREON [Concomitant]
     Active Substance: PANCRELIPASE
     Dosage: 25000 IE, 1?1?1?0
  6. QUETIAPIN [Concomitant]
     Active Substance: QUETIAPINE
     Dosage: 25 MG, 0?0?0?1
  7. DULCOLAX (BISACODYL) [Concomitant]
     Active Substance: BISACODYL
     Dosage: BEDARF
  8. LEVOTHYROXINUM NATRICUM [Concomitant]
     Dosage: 75 ?G, 1?0?0?0

REACTIONS (4)
  - Peripheral swelling [Recovering/Resolving]
  - General physical health deterioration [Recovering/Resolving]
  - Renal impairment [Recovering/Resolving]
  - Dehydration [Recovering/Resolving]
